FAERS Safety Report 15475382 (Version 3)
Quarter: 2018Q4

REPORT INFORMATION
  Report Type: Report from Study
  Country: US (occurrence: US)
  Receive Date: 20181008
  Receipt Date: 20181206
  Transmission Date: 20190205
  Serious: Yes (Hospitalization, Other)
  Sender: FDA-Public Use
  Company Number: US-GILEAD-2018-0366928

PATIENT
  Age: 55 Year
  Sex: Female

DRUGS (3)
  1. AMBRISENTAN [Suspect]
     Active Substance: AMBRISENTAN
     Indication: PRODUCT USED FOR UNKNOWN INDICATION
     Dosage: 10 MG, QD
     Route: 065
     Dates: start: 20170620
  2. WARFARIN [Concomitant]
     Active Substance: WARFARIN
  3. DILTIAZEM. [Concomitant]
     Active Substance: DILTIAZEM

REACTIONS (7)
  - Constipation [Not Recovered/Not Resolved]
  - Electroencephalogram abnormal [Unknown]
  - Abdominal discomfort [Unknown]
  - Paraesthesia [Unknown]
  - Breast cancer [Recovering/Resolving]
  - Dizziness [Unknown]
  - Oesophageal dilatation [Unknown]

NARRATIVE: CASE EVENT DATE: 201711
